FAERS Safety Report 14641635 (Version 2)
Quarter: 2018Q2

REPORT INFORMATION
  Report Type: Other
  Country: RO (occurrence: RO)
  Receive Date: 20180315
  Receipt Date: 20180426
  Transmission Date: 20180711
  Serious: Yes (Hospitalization, Other)
  Sender: FDA-Public Use
  Company Number: RO-ACTELION-A-CH2018-168941

PATIENT
  Age: 48 Year
  Sex: Female

DRUGS (6)
  1. CYCLOPHOSPHAMIDE. [Suspect]
     Active Substance: CYCLOPHOSPHAMIDE
     Indication: INTERSTITIAL LUNG DISEASE
     Dosage: 600 MG, UNK
     Route: 042
     Dates: start: 2015
  2. ALPROSTADIL. [Concomitant]
     Active Substance: ALPROSTADIL
  3. ASPIRIN. [Concomitant]
     Active Substance: ASPIRIN
     Dosage: UNK
  4. CALCIUM [Concomitant]
     Active Substance: CALCIUM
     Indication: SYSTEMIC SCLERODERMA
     Dosage: UNK
  5. PENTOXIFYLLIN [Concomitant]
     Active Substance: PENTOXIFYLLINE
  6. BOSENTAN. [Suspect]
     Active Substance: BOSENTAN
     Indication: SKIN ULCER
     Dosage: 250 MG, QD
     Route: 048

REACTIONS (9)
  - Interstitial lung disease [Unknown]
  - Gangrene [Unknown]
  - Skin ulcer [Recovering/Resolving]
  - Dyspnoea exertional [Unknown]
  - Staphylococcal infection [Recovering/Resolving]
  - Pseudomonas infection [Unknown]
  - Foot amputation [Unknown]
  - Peripheral ischaemia [Unknown]
  - Drug ineffective [Unknown]

NARRATIVE: CASE EVENT DATE: 2015
